FAERS Safety Report 5522276-X (Version None)
Quarter: 2007Q4

REPORT INFORMATION
  Report Type: 
  Country: None (occurrence: None)
  Receive Date: 20071120
  Receipt Date: 20071112
  Transmission Date: 20080405
  Serious: Yes (Hospitalization)
  Sender: FDA-Public Use
  Company Number: US-ELI_LILLY_AND_COMPANY-US200709003624

PATIENT
  Sex: Female

DRUGS (3)
  1. FORTEO [Suspect]
     Indication: COMPRESSION FRACTURE
     Dosage: 20 UG, UNK
     Dates: start: 20070530, end: 20070101
  2. PREDNISONE TAB [Concomitant]
     Dosage: 4 MG, UNK
  3. PREDNISONE TAB [Concomitant]
     Dosage: 4 MG, UNK
     Dates: start: 20070101

REACTIONS (7)
  - ANOREXIA [None]
  - BLOOD CALCIUM INCREASED [None]
  - DEHYDRATION [None]
  - EYE DISORDER [None]
  - HOSPITALISATION [None]
  - MALAISE [None]
  - THIRST DECREASED [None]
